FAERS Safety Report 9352347 (Version 1)
Quarter: 2013Q2

REPORT INFORMATION
  Report Type: Spontaneous
  Country: US (occurrence: US)
  Receive Date: 20130617
  Receipt Date: 20130617
  Transmission Date: 20140414
  Serious: No
  Sender: FDA-Public Use
  Company Number: US-009507513-1306USA002817

PATIENT
  Age: 55 Year
  Sex: Female

DRUGS (2)
  1. FOSAMAX [Suspect]
     Indication: OSTEOPOROSIS
     Dosage: 70 MG, ONCE A WEEK
     Route: 048
     Dates: start: 201212, end: 201303
  2. OSSOPAN [Concomitant]
     Indication: OSTEOPOROSIS
     Dosage: 10 MG, UNK

REACTIONS (1)
  - Abdominal pain upper [Recovered/Resolved]
